FAERS Safety Report 8567840-9 (Version None)
Quarter: 2012Q3

REPORT INFORMATION
  Report Type: 
  Country: None (occurrence: None)
  Receive Date: 20120803
  Receipt Date: 20120727
  Transmission Date: 20120928
  Serious: Yes (Hospitalization, Other)
  Sender: FDA-Public Use
  Company Number: US-AMGEN-USANI2012047397

PATIENT
  Sex: Male
  Weight: 2.384 kg

DRUGS (25)
  1. VICODIN [Concomitant]
     Indication: RHEUMATOID ARTHRITIS
     Dosage: 30 MG, QD
     Route: 064
     Dates: start: 20111111, end: 20120616
  2. CLOMID [Concomitant]
     Indication: IN VITRO FERTILISATION
     Dosage: UNK UNK, QD
     Route: 064
     Dates: start: 20111115, end: 20111115
  3. ZYRTEC [Concomitant]
     Indication: HYPERSENSITIVITY
     Dosage: 10 MG, QD
     Route: 064
     Dates: start: 20111111, end: 20120714
  4. FLUTICASONE PROPIONATE [Concomitant]
     Dosage: UNK UNK, QD
     Route: 064
     Dates: start: 20120326, end: 20120330
  5. ETANERCEPT [Suspect]
     Indication: RHEUMATOID ARTHRITIS
     Dosage: 50 MG, QWK
     Route: 064
     Dates: start: 20111111
  6. RELAFEN [Concomitant]
     Indication: RHEUMATOID ARTHRITIS
     Dosage: 2000 MG, QD
     Route: 064
     Dates: start: 20111111, end: 20111119
  7. ASPIRIN [Concomitant]
     Dosage: 81 MG, QD
     Route: 064
     Dates: start: 20111111, end: 20111203
  8. AMOXICILLIN [Concomitant]
     Indication: SINUSITIS
     Dosage: 1000 MG, QD
     Route: 064
     Dates: start: 20120409, end: 20120413
  9. IRON [Concomitant]
     Indication: UTERINE HYPERTONUS
     Dosage: 325 MG, BID
     Route: 064
     Dates: start: 20120603, end: 20120714
  10. PROGESTERONE [Concomitant]
     Indication: IN VITRO FERTILISATION
     Dosage: 250 MG, QWK
     Route: 064
     Dates: start: 20111117, end: 20120629
  11. TYLENOL (CAPLET) [Concomitant]
     Indication: RHEUMATOID ARTHRITIS
     Dosage: UNK
     Route: 064
     Dates: start: 20111111, end: 20120714
  12. TERBUTALINE [Concomitant]
     Indication: PREMATURE LABOUR
     Dosage: UNK
     Route: 064
     Dates: start: 20120603, end: 20120620
  13. BETAMETHASONE [Concomitant]
     Indication: PREMATURE LABOUR
     Dosage: UNK
     Route: 064
     Dates: start: 20120603, end: 20120604
  14. ZITHROMAX [Concomitant]
     Indication: PNEUMONIA
     Dosage: UNK UNK, QD
     Route: 064
     Dates: start: 20120326, end: 20120329
  15. CAFFEINE [Concomitant]
     Dosage: UNK UNK, QD
     Route: 064
     Dates: start: 20111111, end: 20120714
  16. OMEPRAZOLE [Concomitant]
     Indication: DYSPEPSIA
     Dosage: UNK UNK, QD
     Route: 064
     Dates: start: 20111111, end: 20120714
  17. CALCIUM CARBONATE [Concomitant]
     Indication: DYSPEPSIA
     Dosage: UNK
     Route: 064
     Dates: start: 20120319, end: 20120714
  18. MAGNESIUM [Concomitant]
     Indication: PREMATURE LABOUR
     Dosage: UNK
     Route: 064
     Dates: start: 20120603, end: 20120603
  19. MULTI-VITAMINS [Concomitant]
     Dosage: UNK UNK, QD
     Route: 064
     Dates: start: 20111111, end: 20120714
  20. CHORIONIC GONADOTROPIN [Concomitant]
     Indication: IN VITRO FERTILISATION
     Dosage: UNK
     Route: 064
     Dates: start: 20111123, end: 20111123
  21. PREDNISONE [Concomitant]
     Indication: RHEUMATOID ARTHRITIS
     Dosage: 10 MG, QD
     Route: 064
     Dates: start: 20111111, end: 20120714
  22. FLAGYL [Concomitant]
     Indication: VAGINITIS BACTERIAL
     Dosage: 500 MG, BID
     Route: 064
     Dates: start: 20120604, end: 20120609
  23. FOLIC ACID [Concomitant]
     Dosage: 1 MG, QD
     Route: 064
     Dates: start: 20120319, end: 20120714
  24. MACROBID [Concomitant]
     Indication: PNEUMONIA
     Dosage: UNK UNK, QD
     Route: 064
     Dates: start: 20120326, end: 20120402
  25. XOPENEX [Concomitant]
     Dosage: UNK UNK, QD
     Route: 064
     Dates: start: 20120326, end: 20120330

REACTIONS (1)
  - THROMBOCYTOPENIA [None]
